FAERS Safety Report 26103249 (Version 1)
Quarter: 2025Q4

REPORT INFORMATION
  Report Type: Spontaneous
  Country: US (occurrence: US)
  Receive Date: 20251129
  Receipt Date: 20251129
  Transmission Date: 20260119
  Serious: No
  Sender: IBSA INSTITUT BIOCHIMIQUE
  Company Number: US-IBSA PHARMA INC.-2025IBS000456

PATIENT

DRUGS (2)
  1. LEVOTHYROXINE SODIUM [Suspect]
     Active Substance: LEVOTHYROXINE SODIUM
     Indication: Autoimmune thyroiditis
     Dosage: 150 MICROGRAM, QD (TOTAL DAILY DOSE: 163 MCG)
     Dates: start: 202411
  2. LEVOTHYROXINE SODIUM [Suspect]
     Active Substance: LEVOTHYROXINE SODIUM
     Dosage: 13 MICROGRAM, QD
     Dates: start: 202411

REACTIONS (12)
  - Tri-iodothyronine free abnormal [Unknown]
  - Temperature intolerance [Unknown]
  - Weight increased [Unknown]
  - Constipation [Unknown]
  - Dry skin [Unknown]
  - Alopecia [Unknown]
  - Thyroxine free abnormal [Unknown]
  - Blood thyroid stimulating hormone increased [Unknown]
  - Fatigue [Unknown]
  - Drug ineffective [Unknown]
  - Product packaging issue [Unknown]
  - Product physical consistency issue [Unknown]

NARRATIVE: CASE EVENT DATE: 20241101
